FAERS Safety Report 5772003-6 (Version None)
Quarter: 2008Q2

REPORT INFORMATION
  Report Type: 
  Country: None (occurrence: None)
  Receive Date: 20080612
  Receipt Date: 20080612
  Transmission Date: 20081010
  Serious: Yes (Hospitalization)
  Sender: FDA-Public Use
  Company Number: None

PATIENT
  Age: 75 Year
  Sex: Female
  Weight: 47.6277 kg

DRUGS (2)
  1. DIGOXIN [Suspect]
     Indication: EXTRASYSTOLES
     Dosage: 150 30 TABLETS 3 TIMES PO
     Route: 048
     Dates: start: 20080101, end: 20080310
  2. DIGOXIN [Suspect]

REACTIONS (8)
  - ASTHENIA [None]
  - BLEPHAROSPASM [None]
  - DIZZINESS [None]
  - HEADACHE [None]
  - HYPOAESTHESIA [None]
  - NAUSEA [None]
  - PYREXIA [None]
  - VISION BLURRED [None]
